FAERS Safety Report 25379659 (Version 1)
Quarter: 2025Q2

REPORT INFORMATION
  Report Type: Spontaneous
  Country: ES (occurrence: ES)
  Receive Date: 20250530
  Receipt Date: 20250530
  Transmission Date: 20250716
  Serious: Yes (Other)
  Sender: SANOFI AVENTIS
  Company Number: ES-SA-2025SA151304

PATIENT
  Sex: Male

DRUGS (3)
  1. AUBAGIO [Suspect]
     Active Substance: TERIFLUNOMIDE
  2. TERIFLUNOMIDE VIATRIS [Concomitant]
  3. LUBRISTIL LIPID [Concomitant]
     Indication: Dry eye

REACTIONS (6)
  - Coeliac disease [Not Recovered/Not Resolved]
  - Paraesthesia oral [Not Recovered/Not Resolved]
  - Tinnitus [Not Recovered/Not Resolved]
  - Gait disturbance [Not Recovered/Not Resolved]
  - Epilepsy [Not Recovered/Not Resolved]
  - Urinary incontinence [Not Recovered/Not Resolved]
